FAERS Safety Report 11155667 (Version 1)
Quarter: 2015Q2

REPORT INFORMATION
  Report Type: Spontaneous
  Country: US (occurrence: None)
  Receive Date: 20150601
  Receipt Date: 20150601
  Transmission Date: 20150821
  Serious: Yes (Hospitalization)
  Sender: FDA-Public Use
  Company Number: None

PATIENT
  Age: 82 Year
  Sex: Male
  Weight: 88.6 kg

DRUGS (1)
  1. CODEINE/GUAIFENESIN [Suspect]
     Active Substance: CODEINE\GUAIFENESIN
     Route: 048
     Dates: start: 20150312, end: 20150312

REACTIONS (2)
  - Confusional state [None]
  - Delirium [None]

NARRATIVE: CASE EVENT DATE: 20150401
